FAERS Safety Report 25121828 (Version 1)
Quarter: 2025Q1

REPORT INFORMATION
  Report Type: Spontaneous
  Country: GR (occurrence: GR)
  Receive Date: 20250326
  Receipt Date: 20250326
  Transmission Date: 20250408
  Serious: Yes (Hospitalization, Other)
  Sender: AMGEN
  Company Number: GR-AMGEN-GRCSP2025053285

PATIENT
  Age: 54 Year
  Sex: Female

DRUGS (5)
  1. XGEVA [Suspect]
     Active Substance: DENOSUMAB
     Indication: Metastases to spine
     Route: 065
  2. XGEVA [Suspect]
     Active Substance: DENOSUMAB
     Indication: HER2 positive breast cancer
  3. BEVACIZUMAB [Suspect]
     Active Substance: BEVACIZUMAB
     Indication: Product used for unknown indication
     Route: 065
  4. SAMARIUM SM-153 LEXIDRONAM [Concomitant]
     Active Substance: SAMARIUM SM-153 LEXIDRONAM
     Dates: start: 201703
  5. CAPECITABINE [Concomitant]
     Active Substance: CAPECITABINE

REACTIONS (9)
  - Breast cancer metastatic [Unknown]
  - Metastases to lung [Unknown]
  - Metastases to liver [Unknown]
  - Metastases to central nervous system [Unknown]
  - Metastases to meninges [Unknown]
  - Abdominal hernia [Recovering/Resolving]
  - Ileus [Recovering/Resolving]
  - Thrombocytopenia [Recovering/Resolving]
  - Cancer pain [Unknown]

NARRATIVE: CASE EVENT DATE: 20181001
